FAERS Safety Report 9838404 (Version 1)
Quarter: 2013Q4

REPORT INFORMATION
  Report Type: Spontaneous
  Country: US (occurrence: None)
  Receive Date: 20131206
  Receipt Date: 20131206
  Transmission Date: 20140711
  Serious: Yes (Hospitalization)
  Sender: FDA-Public Use
  Company Number: 375197

PATIENT
  Age: 31 Year
  Sex: Female

DRUGS (2)
  1. NOVOLOG [Suspect]
     Indication: TYPE 2 DIABETES MELLITUS
     Dosage: SUBCUTAN.-PUMP
     Dates: end: 201304
  2. DIFLUCAN (FLUCONAZOLE) [Concomitant]

REACTIONS (1)
  - Hypersensitivity [None]
